FAERS Safety Report 4586647-0 (Version None)
Quarter: 2005Q1

REPORT INFORMATION
  Report Type: 
  Country: None (occurrence: None)
  Receive Date: 20050218
  Receipt Date: 20040921
  Transmission Date: 20050727
  Serious: Yes (Other)
  Sender: FDA-Public Use
  Company Number: US-BRISTOL-MYERS SQUIBB COMPANY-12708228

PATIENT
  Age: 63 Year
  Sex: Male

DRUGS (2)
  1. TAXOL [Suspect]
     Route: 042
     Dates: start: 20040817, end: 20040817
  2. CARBOPLATIN [Suspect]
     Route: 042
     Dates: start: 20040817, end: 20040817

REACTIONS (1)
  - THERAPEUTIC AGENT TOXICITY [None]
